FAERS Safety Report 23079360 (Version 1)
Quarter: 2023Q4

REPORT INFORMATION
  Report Type: Spontaneous
  Country: CA (occurrence: CA)
  Receive Date: 20231018
  Receipt Date: 20231018
  Transmission Date: 20240110
  Serious: Yes (Death)
  Sender: FDA-Public Use
  Company Number: CA-PFIZER INC-PV202300145278

PATIENT
  Age: 50 Year
  Sex: Male
  Weight: 105.5 kg

DRUGS (3)
  1. ZIRABEV [Suspect]
     Active Substance: BEVACIZUMAB-BVZR
     Dosage: 1075 MG
     Route: 042
     Dates: start: 20230823
  2. ZIRABEV [Suspect]
     Active Substance: BEVACIZUMAB-BVZR
     Dosage: 1075 MG
     Route: 042
     Dates: start: 20230823
  3. ZIRABEV [Suspect]
     Active Substance: BEVACIZUMAB-BVZR
     Dosage: 1075 MG
     Route: 042
     Dates: start: 20230823

REACTIONS (7)
  - Death [Fatal]
  - Agitation [Unknown]
  - Balance disorder [Unknown]
  - Aggression [Unknown]
  - Heart rate irregular [Unknown]
  - Malaise [Unknown]
  - Insomnia [Unknown]

NARRATIVE: CASE EVENT DATE: 20230823
